FAERS Safety Report 12162962 (Version 1)
Quarter: 2016Q1

REPORT INFORMATION
  Report Type: Spontaneous
  Country: US (occurrence: US)
  Receive Date: 20160309
  Receipt Date: 20160309
  Transmission Date: 20160526
  Serious: No
  Sender: FDA-Public Use
  Company Number: US-ROCHE-1503802

PATIENT
  Age: 38 Year
  Sex: Male

DRUGS (4)
  1. XOLAIR [Suspect]
     Active Substance: OMALIZUMAB
     Indication: MULTIPLE ALLERGIES
  2. XOLAIR [Suspect]
     Active Substance: OMALIZUMAB
     Indication: ECZEMA
  3. XOLAIR [Suspect]
     Active Substance: OMALIZUMAB
     Indication: ASTHMA
     Route: 065
     Dates: start: 201412
  4. XOLAIR [Suspect]
     Active Substance: OMALIZUMAB
     Indication: DERMATITIS

REACTIONS (4)
  - Hypersensitivity [Unknown]
  - Blood immunoglobulin E increased [Unknown]
  - Skin disorder [Not Recovered/Not Resolved]
  - Injection site reaction [Not Recovered/Not Resolved]
